FAERS Safety Report 5871020-5 (Version None)
Quarter: 2008Q3

REPORT INFORMATION
  Report Type: 
  Country: None (occurrence: None)
  Receive Date: 20080904
  Receipt Date: 20080829
  Transmission Date: 20090109
  Serious: Yes (Hospitalization)
  Sender: FDA-Public Use
  Company Number: CO-WYE-H05815308

PATIENT
  Sex: Female
  Weight: 87 kg

DRUGS (2)
  1. TYGACIL [Suspect]
     Indication: CELLULITIS
     Route: 042
     Dates: start: 20080815, end: 20080820
  2. ENOXAPARIN SODIUM [Concomitant]
     Indication: THROMBOSIS PROPHYLAXIS
     Route: 058
     Dates: start: 20030713

REACTIONS (2)
  - ABDOMINAL DISCOMFORT [None]
  - VOMITING [None]
